FAERS Safety Report 4268587-X (Version None)
Quarter: 2004Q1

REPORT INFORMATION
  Report Type: 
  Country: None (occurrence: None)
  Receive Date: 20040112
  Receipt Date: 20031017
  Transmission Date: 20041129
  Serious: Yes (Hospitalization)
  Sender: FDA-Public Use
  Company Number: US-GLAXOSMITHKLINE-A0430584A

PATIENT
  Age: 69 Year
  Sex: Male

DRUGS (14)
  1. AVODART [Suspect]
     Indication: BENIGN PROSTATIC HYPERPLASIA
     Dosage: .5MG PER DAY
     Route: 048
     Dates: start: 20030930, end: 20031013
  2. DAYPRO [Concomitant]
  3. NEXIUM [Concomitant]
  4. CIPRO [Concomitant]
  5. LISINOPRIL [Concomitant]
  6. TOPROL-XL [Concomitant]
  7. PLAVIX [Concomitant]
  8. DIOVAN [Concomitant]
  9. ADVAIR DISKUS 250/50 [Concomitant]
  10. ATIVAN [Concomitant]
  11. PERCOCET [Concomitant]
  12. NITROGLYCERIN [Concomitant]
  13. ASPIRIN [Concomitant]
  14. MULTI-VITAMIN [Concomitant]

REACTIONS (3)
  - BRONCHIAL INFECTION [None]
  - DYSPNOEA [None]
  - PRURITUS [None]
